FAERS Safety Report 23119249 (Version 2)
Quarter: 2024Q1

REPORT INFORMATION
  Report Type: Spontaneous
  Country: US (occurrence: US)
  Receive Date: 20231028
  Receipt Date: 20240104
  Transmission Date: 20240410
  Serious: Yes (Other)
  Sender: FDA-Public Use
  Company Number: US-TEVA-2021-US-1962468

PATIENT
  Age: 67 Year

DRUGS (3)
  1. PROAIR HFA [Suspect]
     Active Substance: ALBUTEROL SULFATE
     Indication: Chronic obstructive pulmonary disease
     Dosage: DOSAGE TEXT: 2 PUFFS EVERY 4 HOURS
     Route: 065
  2. PROAIR HFA [Suspect]
     Active Substance: ALBUTEROL SULFATE
     Indication: Emphysema
  3. PROAIR HFA [Suspect]
     Active Substance: ALBUTEROL SULFATE
     Indication: Bronchitis chronic

REACTIONS (4)
  - Oxygen therapy [Unknown]
  - Extra dose administered [Unknown]
  - Therapy interrupted [Unknown]
  - Clumsiness [Unknown]
